FAERS Safety Report 15401987 (Version 5)
Quarter: 2021Q3

REPORT INFORMATION
  Report Type: Spontaneous
  Country: JP (occurrence: JP)
  Receive Date: 20180919
  Receipt Date: 20210714
  Transmission Date: 20211014
  Serious: Yes (Life-Threatening, Hospitalization, Other)
  Sender: FDA-Public Use
  Company Number: JP-LUNDBECK-DKLU2034755

PATIENT
  Age: 18 Month
  Sex: Male
  Weight: 10 kg

DRUGS (16)
  1. ZONISAMIDE. [Concomitant]
     Active Substance: ZONISAMIDE
     Indication: INFANTILE SPASMS
     Dosage: DAILY DOSE: 85 MG
     Route: 048
     Dates: start: 20170220
  2. MIDAZOLAM. [Concomitant]
     Active Substance: MIDAZOLAM
     Indication: EPILEPSY
     Route: 041
  3. VIGABATRIN. [Suspect]
     Active Substance: VIGABATRIN
     Dosage: 375 MG, BID
     Route: 048
     Dates: start: 20170308, end: 20170715
  4. EXCEGRAN [Concomitant]
     Active Substance: ZONISAMIDE
     Indication: INFANTILE SPASMS
     Dosage: DOSE 30?75 MG
     Route: 048
     Dates: start: 20170203, end: 20170219
  5. VIGABATRIN. [Suspect]
     Active Substance: VIGABATRIN
     Dosage: 250 MG, BID
     Route: 048
     Dates: start: 20170301, end: 20170307
  6. EXCEGRAN [Concomitant]
     Active Substance: ZONISAMIDE
     Dosage: 85 MG, QD
     Route: 048
     Dates: start: 20170220
  7. KENEI G [Concomitant]
     Active Substance: GLYCERIN
     Indication: PRODUCT USED FOR UNKNOWN INDICATION
     Dosage: DAILY DOSE: 30 ML
     Route: 065
  8. NITRAZEPAM [Concomitant]
     Active Substance: NITRAZEPAM
     Indication: INFANTILE SPASMS
     Dosage: DAILY DOSE: 1.2 MG
     Route: 048
     Dates: start: 20170220
  9. GASCON [Concomitant]
     Active Substance: DIMETHICONE
     Indication: PRODUCT USED FOR UNKNOWN INDICATION
     Dosage: DAILY DOSE: 30 MG
     Route: 048
  10. VIGABATRIN. [Suspect]
     Active Substance: VIGABATRIN
     Dosage: 75.00 MG/KG, QD
     Route: 048
  11. ALFAROL [Concomitant]
     Active Substance: ALFACALCIDOL
     Indication: PRODUCT USED FOR UNKNOWN INDICATION
     Dosage: DAILY DOSE: 0.2 UG
     Route: 048
  12. GASMOTIN [Concomitant]
     Active Substance: MOSAPRIDE CITRATE
     Indication: PRODUCT USED FOR UNKNOWN INDICATION
     Dosage: DAILY DOSE: 3 MG
     Route: 048
     Dates: start: 20170515
  13. THYRADIN S [Concomitant]
     Active Substance: LEVOTHYROXINE SODIUM
     Indication: PRODUCT USED FOR UNKNOWN INDICATION
     Dosage: DAILY DOSE: 15 UG
     Route: 048
  14. VIGABATRIN. [Suspect]
     Active Substance: VIGABATRIN
     Indication: INFANTILE SPASMS
     Dosage: 140 MG, BID
     Route: 048
     Dates: start: 20170223, end: 20170228
  15. BENZALIN [Concomitant]
     Indication: INFANTILE SPASMS
     Route: 048
     Dates: start: 20170220
  16. EPINASTINE. [Concomitant]
     Active Substance: EPINASTINE HYDROCHLORIDE
     Indication: PRODUCT USED FOR UNKNOWN INDICATION
     Dosage: DAILY DOSE: 4 MG
     Route: 048
     Dates: start: 20170222

REACTIONS (12)
  - Insomnia [Unknown]
  - Tension [Recovered/Resolved with Sequelae]
  - Glassy eyes [Recovered/Resolved with Sequelae]
  - Neurotransmitter level altered [Recovering/Resolving]
  - Restlessness [Unknown]
  - Oxygen saturation decreased [Recovered/Resolved with Sequelae]
  - Magnetic resonance imaging head abnormal [Unknown]
  - Encephalopathy [Recovered/Resolved with Sequelae]
  - Altered state of consciousness [Recovered/Resolved with Sequelae]
  - Vomiting [Recovered/Resolved with Sequelae]
  - Muscular weakness [Recovered/Resolved with Sequelae]
  - Muscle rigidity [Unknown]

NARRATIVE: CASE EVENT DATE: 20170711
